FAERS Safety Report 10234468 (Version 4)
Quarter: 2014Q3

REPORT INFORMATION
  Report Type: Spontaneous
  Country: US (occurrence: US)
  Receive Date: 20140613
  Receipt Date: 20140707
  Transmission Date: 20150326
  Serious: Yes (Other)
  Sender: FDA-Public Use
  Company Number: US-AMGEN INC.-USASP2014043029

PATIENT
  Age: 60 Year
  Sex: Female

DRUGS (2)
  1. METHOTREXATE [Concomitant]
     Active Substance: METHOTREXATE
     Dosage: UNK MG, UNK (FOR THE LAST 2 WEEKS)
  2. ENBREL [Suspect]
     Active Substance: ETANERCEPT
     Indication: RHEUMATOID ARTHRITIS
     Dosage: 25 MG, 2 TIMES/WK
     Route: 065
     Dates: start: 20140602

REACTIONS (12)
  - Rhinorrhoea [Not Recovered/Not Resolved]
  - Abdominal pain upper [Recovered/Resolved]
  - Night sweats [Unknown]
  - Rheumatoid arthritis [Not Recovered/Not Resolved]
  - Injection site dryness [Not Recovered/Not Resolved]
  - Injection site bruising [Not Recovered/Not Resolved]
  - Headache [Not Recovered/Not Resolved]
  - Injection site erythema [Not Recovered/Not Resolved]
  - Hyperhidrosis [Not Recovered/Not Resolved]
  - Influenza like illness [Not Recovered/Not Resolved]
  - Injection site reaction [Not Recovered/Not Resolved]
  - Diarrhoea [Not Recovered/Not Resolved]

NARRATIVE: CASE EVENT DATE: 201406
